FAERS Safety Report 6543766-7 (Version None)
Quarter: 2010Q1

REPORT INFORMATION
  Report Type: 
  Country: None (occurrence: None)
  Receive Date: 20100120
  Receipt Date: 20090317
  Transmission Date: 20100710
  Serious: No
  Sender: FDA-Public Use
  Company Number: US-BRISTOL-MYERS SQUIBB COMPANY-14551741

PATIENT
  Sex: Female

DRUGS (4)
  1. TRAZODONE HCL [Suspect]
  2. DILAUDID [Suspect]
  3. VALIUM [Suspect]
  4. MS CONTIN [Suspect]

REACTIONS (1)
  - OVERDOSE [None]
